FAERS Safety Report 4714034-0 (Version None)
Quarter: 2005Q3

REPORT INFORMATION
  Report Type: 
  Country: None (occurrence: None)
  Receive Date: 20050713
  Receipt Date: 20050628
  Transmission Date: 20060218
  Serious: Yes (Hospitalization, Other)
  Sender: FDA-Public Use
  Company Number: 2005S1003147

PATIENT
  Age: 54 Year
  Sex: Male
  Weight: 117.9352 kg

DRUGS (7)
  1. METOPROLOL TARTRATE [Suspect]
     Indication: HYPERTENSION
     Dosage: 25 MG;BID;PO; 12.5 MG; BID; PO
     Route: 048
     Dates: start: 20050428, end: 20050501
  2. METOPROLOL TARTRATE [Suspect]
     Indication: HYPERTENSION
     Dosage: 25 MG;BID;PO; 12.5 MG; BID; PO
     Route: 048
     Dates: start: 20050501, end: 20050502
  3. HYDROCHLOROTHIAZIDE/ VALSARTAN [Concomitant]
  4. ASPIRIN [Concomitant]
  5. LANSOPRAZOLE [Concomitant]
  6. GLUCOSAMINE [Concomitant]
  7. CHONDROITIN SULFATE SODIUM [Concomitant]

REACTIONS (12)
  - ABDOMINAL DISTENSION [None]
  - ASTHENIA [None]
  - CHEST PAIN [None]
  - CHILLS [None]
  - DRUG WITHDRAWAL SYNDROME [None]
  - ERUCTATION [None]
  - FEELING COLD [None]
  - FLATULENCE [None]
  - HEART RATE DECREASED [None]
  - NERVOUSNESS [None]
  - TREMOR [None]
  - WEIGHT DECREASED [None]
